FAERS Safety Report 8436590-1 (Version None)
Quarter: 2012Q2

REPORT INFORMATION
  Report Type: 
  Country: None (occurrence: None)
  Receive Date: 20120608
  Receipt Date: 20120529
  Transmission Date: 20120825
  Serious: Yes (Hospitalization, Other)
  Sender: FDA-Public Use
  Company Number: 2012HGS-003679

PATIENT
  Age: 53 Year
  Sex: Female
  Weight: 107.5025 kg

DRUGS (14)
  1. CALCIUM WITH VITAMIN D (CALCIUM + VIT D) (CALCIUM CARBONATE, VITAMIN D [Concomitant]
  2. MAGNESIUM OXIDE (MAGNESIUM OXIDE) (MAGNESIUM OXIDE) [Concomitant]
  3. NEXIUM [Concomitant]
  4. PAROXETINE HCL (PAROXETINE HYDROCHLORIDE) (PAROXETINE HYDROCHLORIDE) [Concomitant]
  5. FLEXERIL (CYCLOBENZAPRINE HYDROCHLORIDE) (CYCLOBENZAPRINE HYDROCHLORID [Concomitant]
  6. LISINOPRIL [Concomitant]
  7. METOPROLOL SUCCINATE [Concomitant]
  8. FISH OIL (FISH OIL) [Concomitant]
  9. OCUVITE (OCUVITE /01053801/) (ASCORBIC ACID, TOCOPHEROL, RETINOL) [Concomitant]
  10. PREDNISONE [Concomitant]
  11. ASPIRIN [Concomitant]
  12. MINIPRESS (PRAZOSIN HYDROCHLORIDE) (PRAZOSIN HYDROCHLORIDE) [Concomitant]
  13. BENLYSTA [Suspect]
     Indication: SYSTEMIC LUPUS ERYTHEMATOSUS
     Dosage: INTRAVENOUS DRIP
     Route: 041
     Dates: start: 20120423
  14. TRAMADOL HCL [Concomitant]

REACTIONS (1)
  - UTERINE CANCER [None]
